FAERS Safety Report 4364903-9 (Version None)
Quarter: 2004Q2

REPORT INFORMATION
  Report Type: 
  Country: None (occurrence: None)
  Receive Date: 20040525
  Receipt Date: 20040525
  Transmission Date: 20050107
  Serious: No
  Sender: FDA-Public Use
  Company Number: None

PATIENT
  Sex: Male
  Weight: 96.5 kg

DRUGS (3)
  1. THALIDOMIDE [Suspect]
     Dosage: SEE IMAGE
     Route: 048
     Dates: start: 20040416
  2. PACLITAXEL [Suspect]
     Dosage: 225 MG/M2 IV OVER 3 HOURS ON DAY 1 EVERY 21 DAYS X 2
     Route: 042
     Dates: start: 20040416
  3. CARBOPLATIN [Suspect]
     Dosage: AUC = 6 IV OVER 15-30 MIN ON DAY 1 EVERY 21 DAYS X 2
     Route: 042
     Dates: start: 20040416

REACTIONS (6)
  - HYPOXIA [None]
  - INFECTION [None]
  - LUNG INFILTRATION [None]
  - NEUTROPENIA [None]
  - PNEUMONIA [None]
  - PNEUMONITIS [None]
